FAERS Safety Report 8616479-5 (Version None)
Quarter: 2012Q3

REPORT INFORMATION
  Report Type: 
  Country: None (occurrence: None)
  Receive Date: 20120823
  Receipt Date: 20120821
  Transmission Date: 20120928
  Serious: Yes (Hospitalization)
  Sender: FDA-Public Use
  Company Number: AU-JNJFOC-20120708658

PATIENT
  Sex: Female
  Weight: 49.9 kg

DRUGS (15)
  1. ANTROQUORIL [Concomitant]
     Dates: start: 20111109
  2. CEPHALEXIN [Concomitant]
     Route: 048
     Dates: start: 20100624
  3. TRICORTONE [Concomitant]
     Route: 061
     Dates: start: 20120227
  4. HYDROCORTISONE [Concomitant]
     Route: 061
     Dates: start: 20101014
  5. GOLIMUMAB [Suspect]
     Indication: COLITIS ULCERATIVE
     Route: 058
     Dates: start: 20120508
  6. GOLIMUMAB [Suspect]
     Route: 058
     Dates: start: 20090805
  7. GOLIMUMAB [Suspect]
     Route: 058
     Dates: start: 20120807
  8. SULFASALAZINE [Concomitant]
     Route: 048
     Dates: start: 20091223
  9. FLUTICASONE FUROATE [Concomitant]
     Route: 045
     Dates: start: 20120216
  10. HYDROCORTISONE [Concomitant]
     Indication: EYE INFLAMMATION
     Route: 047
     Dates: start: 20120507
  11. PREMIA [Concomitant]
     Route: 048
     Dates: start: 20100327
  12. GOLIMUMAB [Suspect]
     Route: 058
     Dates: start: 20120710
  13. ADVANTAN [Concomitant]
     Route: 061
     Dates: start: 20110325
  14. PHENERGAN HCL [Concomitant]
     Indication: RASH
     Route: 061
     Dates: start: 20120309
  15. ELOCON [Concomitant]
     Route: 061
     Dates: start: 20110525

REACTIONS (2)
  - SINUSITIS [None]
  - OTITIS MEDIA [None]
